FAERS Safety Report 20956033 (Version 2)
Quarter: 2022Q2

REPORT INFORMATION
  Report Type: Spontaneous
  Country: US (occurrence: None)
  Receive Date: 20220614
  Receipt Date: 20220615
  Transmission Date: 20220721
  Serious: No
  Sender: FDA-Public Use
  Company Number: US-MDD US Operations-MDD202201-000124

PATIENT
  Age: 70 Year
  Sex: Female

DRUGS (31)
  1. APOKYN [Suspect]
     Active Substance: APOMORPHINE HYDROCHLORIDE
     Indication: Parkinson^s disease
     Route: 058
     Dates: start: 202201
  2. RYTARY [Concomitant]
     Active Substance: CARBIDOPA\LEVODOPA
  3. RYTARY [Concomitant]
     Active Substance: CARBIDOPA\LEVODOPA
  4. RYTARY [Concomitant]
     Active Substance: CARBIDOPA\LEVODOPA
  5. RYTARY [Concomitant]
     Active Substance: CARBIDOPA\LEVODOPA
  6. RYTARY [Concomitant]
     Active Substance: CARBIDOPA\LEVODOPA
  7. NEUPRO [Concomitant]
     Active Substance: ROTIGOTINE
  8. NOURIANZ [Concomitant]
     Active Substance: ISTRADEFYLLINE
     Indication: Parkinson^s disease
  9. DONEPEZIL [Concomitant]
     Active Substance: DONEPEZIL
  10. MEMANTINE [Concomitant]
     Active Substance: MEMANTINE
     Indication: Parkinson^s disease
  11. DOMPERIDONE [Concomitant]
     Active Substance: DOMPERIDONE
     Indication: Nausea
  12. HYDROXYZINE HYDROCHLORIDE [Concomitant]
     Active Substance: HYDROXYZINE HYDROCHLORIDE
     Dosage: NOT PROVIDED
  13. AZELASTINE [Concomitant]
     Active Substance: AZELASTINE
     Dosage: NOT PROVIDED
  14. Prilosac [Concomitant]
  15. MYRBETRIQ [Concomitant]
     Active Substance: MIRABEGRON
  16. CRESTOR [Concomitant]
     Active Substance: ROSUVASTATIN CALCIUM
     Dosage: NOT PROVIDED
  17. IPRATROPIUM BROMIDE [Concomitant]
     Active Substance: IPRATROPIUM BROMIDE
     Dosage: NOT PROVIDED
  18. PROLIA [Concomitant]
     Active Substance: DENOSUMAB
     Dosage: NOT PROVIDED
  19. Colate [Concomitant]
     Dosage: NOT PROVIDED
  20. TYLENOL [Concomitant]
     Active Substance: ACETAMINOPHEN
     Dosage: NOT PROVIDED
  21. CHONDROITIN SULFATE (BOVINE)\GLUCOSAMINE HYDROCHLORIDE [Concomitant]
     Active Substance: CHONDROITIN SULFATE (BOVINE)\GLUCOSAMINE HYDROCHLORIDE
  22. FISH OIL [Concomitant]
     Active Substance: FISH OIL
  23. VITAMIN C [Concomitant]
     Active Substance: ASCORBIC ACID
     Dosage: NOT PROVIDED
  24. VITAMIN D3 [Concomitant]
     Active Substance: CHOLECALCIFEROL
     Dosage: NOT PROVIDED
  25. VITAMIN B12 [Concomitant]
     Active Substance: CYANOCOBALAMIN
     Dosage: NOT PROVIDED
  26. CALCIUM [Concomitant]
     Active Substance: CALCIUM
     Dosage: NOT PROVIDED
  27. MAGNESIUM [Concomitant]
     Active Substance: MAGNESIUM
     Dosage: NOT PROVIDED
  28. CHLORIDE ION [Concomitant]
     Active Substance: CHLORIDE ION
     Dosage: NOT PROVIDED
  29. D-MANNOSE [Concomitant]
     Dosage: NOT PROVIDED
  30. Cranberry supplements [Concomitant]
     Dosage: NOT PROVIDED
  31. VITAMINS [Concomitant]
     Active Substance: VITAMINS
     Dosage: NOT PROVIDED

REACTIONS (8)
  - Feeling hot [Recovered/Resolved]
  - Pallor [Recovered/Resolved]
  - Infrequent bowel movements [Recovered/Resolved]
  - Blood pressure decreased [Recovered/Resolved]
  - Dyskinesia [Recovered/Resolved]
  - Headache [Recovered/Resolved]
  - Device issue [Unknown]
  - Therapeutic product effect variable [Unknown]

NARRATIVE: CASE EVENT DATE: 20220128
